FAERS Safety Report 6147025-6 (Version None)
Quarter: 2009Q2

REPORT INFORMATION
  Report Type: 
  Country: None (occurrence: None)
  Receive Date: 20090407
  Receipt Date: 20090323
  Transmission Date: 20091009
  Serious: Yes (Death, Other)
  Sender: FDA-Public Use
  Company Number: CZ-GENENTECH-280365

PATIENT

DRUGS (1)
  1. ACTIVASE [Suspect]
     Indication: ISCHAEMIC STROKE
     Dosage: UNK
     Route: 042

REACTIONS (11)
  - CARDIAC DISORDER [None]
  - CEREBRAL ARTERY OCCLUSION [None]
  - CEREBRAL HAEMATOMA [None]
  - CEREBRAL HAEMORRHAGE [None]
  - CEREBRAL THROMBOSIS [None]
  - CEREBROVASCULAR ACCIDENT [None]
  - DEATH [None]
  - HAEMORRHAGE INTRACRANIAL [None]
  - HAEMORRHAGIC CEREBRAL INFARCTION [None]
  - HAEMORRHAGIC TRANSFORMATION STROKE [None]
  - LUNG DISORDER [None]
